FAERS Safety Report 8287340-3 (Version None)
Quarter: 2012Q2

REPORT INFORMATION
  Report Type: 
  Country: None (occurrence: None)
  Receive Date: 20120416
  Receipt Date: 20120406
  Transmission Date: 20120825
  Serious: No
  Sender: FDA-Public Use
  Company Number: US-B.I. PHARMACEUTICALS,INC./RIDGEFIELD-2012-BP-06522BP

PATIENT
  Sex: Female

DRUGS (5)
  1. CLONAZEPAM [Concomitant]
     Indication: ANXIETY
     Dosage: 0.5 MG
     Route: 048
     Dates: start: 20100101
  2. EFFEXOR [Concomitant]
     Dosage: 75 MG
     Route: 048
     Dates: start: 20070101
  3. MIRAPEX [Suspect]
     Indication: PARKINSON'S DISEASE
     Dosage: 0.75 MG
     Route: 048
     Dates: start: 20120405
  4. HYDROCORTISONE [Concomitant]
     Dosage: 60 MG
     Route: 048
     Dates: start: 20020101
  5. CARBIDOPA + LEVODOPA [Concomitant]
     Indication: PARKINSON'S DISEASE
     Dosage: (TABLET) STRENGTH: 25/100 MG; DAILY DOSE: 3 TABS
     Route: 048
     Dates: start: 20101101

REACTIONS (1)
  - LOSS OF CONSCIOUSNESS [None]
